FAERS Safety Report 10619271 (Version 3)
Quarter: 2015Q2

REPORT INFORMATION
  Report Type: Spontaneous
  Country: KR (occurrence: KR)
  Receive Date: 20141202
  Receipt Date: 20150615
  Transmission Date: 20150821
  Serious: Yes (Death, Hospitalization)
  Sender: FDA-Public Use
  Company Number: KR-OTSUKA-US-2014-14024

PATIENT
  Age: 79 Year
  Sex: Male
  Weight: 58 kg

DRUGS (9)
  1. DACOGEN [Suspect]
     Active Substance: DECITABINE
     Indication: ACUTE MYELOID LEUKAEMIA
     Dosage: 20 MG/M2, UNKNOWN, 1 IN
     Route: 042
     Dates: start: 20141007, end: 20141011
  2. ZOVIRAX [Concomitant]
     Active Substance: ACYCLOVIR
     Indication: ANTIVIRAL PROPHYLAXIS
     Dosage: 200 MG MILLIGRAM(S), UNKNOWN, 2 IN
     Route: 048
     Dates: start: 20140903, end: 20141113
  3. AMINOBENZOIC ACID [Concomitant]
     Active Substance: AMINOBENZOIC ACID
     Indication: HAEMOSTASIS
     Dosage: 10 MG/ML, UNKNOWN, 1 IN
     Route: 042
     Dates: start: 20141115, end: 20141117
  4. CIPROCTAN [Concomitant]
     Indication: ANTIBIOTIC PROPHYLAXIS
     Dosage: 500 MG MILLIGRAM(S), UNKNOWN, 2 IN
     Route: 048
     Dates: start: 20140903, end: 20141113
  5. NEUTROGIN [Concomitant]
     Active Substance: LENOGRASTIM
     Indication: BONE MARROW FAILURE
     Dosage: 250 MCG, UNKNOWN, 1 IN
     Route: 042
     Dates: start: 20141112, end: 20141117
  6. SPORANOX [Concomitant]
     Active Substance: ITRACONAZOLE\SODIUM CHLORIDE
     Indication: ANTIFUNGAL PROPHYLAXIS
     Dosage: 10 ML MILLILITRE(S), UNKNOWN, 2 IN
     Route: 048
     Dates: start: 20140903
  7. MAXIPIME [Concomitant]
     Active Substance: CEFEPIME HYDROCHLORIDE
     Indication: ANTIBIOTIC THERAPY
     Dosage: 2 G GRAM(S), UNKNOWN, 3 IN
     Route: 042
     Dates: start: 20141111, end: 20141117
  8. ATIVAN [Concomitant]
     Active Substance: LORAZEPAM
     Indication: SEDATIVE THERAPY
     Dosage: 4 MG MILLIGRAM(S), UNKNOWN, 2 IN
     Route: 042
     Dates: start: 20141113, end: 20141113
  9. DACOGEN [Suspect]
     Active Substance: DECITABINE
     Dosage: 20 MG/M2, UNKNOWN, 1 IN
     Route: 042
     Dates: start: 20141107, end: 20141111

REACTIONS (3)
  - Febrile neutropenia [Not Recovered/Not Resolved]
  - Sinusitis [Fatal]
  - Device related infection [Fatal]

NARRATIVE: CASE EVENT DATE: 20141107
